FAERS Safety Report 7820934-5 (Version None)
Quarter: 2011Q4

REPORT INFORMATION
  Report Type: 
  Country: None (occurrence: None)
  Receive Date: 20111018
  Receipt Date: 20111011
  Transmission Date: 20120403
  Serious: Yes (Hospitalization)
  Sender: FDA-Public Use
  Company Number: JP-GLAXOSMITHKLINE-B0755595A

PATIENT
  Age: 77 Year
  Sex: Male

DRUGS (6)
  1. PRAVASTATIN [Suspect]
  2. ALKERAN [Suspect]
     Route: 058
  3. PREDNISOLONE [Concomitant]
     Route: 065
  4. THALIDOMIDE [Concomitant]
     Route: 048
     Dates: start: 20090801, end: 20100801
  5. LENALIDOMIDE [Suspect]
     Dosage: 25MG PER DAY
  6. DEXAMETHASONE [Concomitant]
     Route: 065

REACTIONS (7)
  - NEUROPATHY PERIPHERAL [None]
  - RHABDOMYOLYSIS [None]
  - MYALGIA [None]
  - MUSCULAR WEAKNESS [None]
  - MYOGLOBINURIA [None]
  - BLOOD CREATINE PHOSPHOKINASE INCREASED [None]
  - RENAL IMPAIRMENT [None]
